FAERS Safety Report 9011296 (Version 2)
Quarter: 2013Q4

REPORT INFORMATION
  Report Type: Spontaneous
  Country: GB (occurrence: GB)
  Receive Date: 20130109
  Receipt Date: 20131008
  Transmission Date: 20140711
  Serious: Yes (Other)
  Sender: FDA-Public Use
  Company Number: GB-WATSON-2012-23362

PATIENT
  Age: 71 Year
  Sex: Female

DRUGS (4)
  1. ALENDRONIC ACID (UNKNOWN) [Suspect]
     Indication: OSTEOPOROSIS
     Dosage: UNK, LONG TERM TREATMENT
     Route: 048
  2. OMEPRAZOLE [Concomitant]
     Indication: PRODUCT USED FOR UNKNOWN INDICATION
     Dosage: UNK
     Route: 065
  3. ADCAL                              /00751519/ [Concomitant]
     Indication: PRODUCT USED FOR UNKNOWN INDICATION
     Dosage: UNK
     Route: 065
  4. STRONTIUM RANELATE [Concomitant]
     Indication: PRODUCT USED FOR UNKNOWN INDICATION
     Dosage: UNK
     Route: 065

REACTIONS (3)
  - Osteonecrosis of jaw [Not Recovered/Not Resolved]
  - Bone loss [Unknown]
  - Oroantral fistula [Unknown]
